FAERS Safety Report 21642355 (Version 1)
Quarter: 2022Q4

REPORT INFORMATION
  Report Type: Spontaneous
  Country: US (occurrence: US)
  Receive Date: 20221125
  Receipt Date: 20221125
  Transmission Date: 20230112
  Serious: No
  Sender: FDA-Public Use
  Company Number: US-SUNOVION-2022SUN003269AA

PATIENT
  Age: 70 Year
  Sex: Female

DRUGS (2)
  1. LATUDA [Suspect]
     Active Substance: LURASIDONE HYDROCHLORIDE
     Dosage: 40 MG
     Route: 048
  2. LATUDA [Suspect]
     Active Substance: LURASIDONE HYDROCHLORIDE
     Dosage: 30 MG (1.5 TABLETS OF LATUDA 20 MG)
     Route: 048

REACTIONS (3)
  - Therapeutic product effect increased [Unknown]
  - Off label use [Unknown]
  - Wrong technique in product usage process [Unknown]
